FAERS Safety Report 5603700-0 (Version None)
Quarter: 2008Q1

REPORT INFORMATION
  Report Type: 
  Country: None (occurrence: None)
  Receive Date: 20080128
  Receipt Date: 20080116
  Transmission Date: 20080703
  Serious: Yes (Other)
  Sender: FDA-Public Use
  Company Number: US-BAYER-200810284BCC

PATIENT
  Age: 4 Year
  Sex: Female
  Weight: 23 kg

DRUGS (1)
  1. RID LICE KILLING SHAMPOO AND CONDITIONER [Suspect]
     Indication: LICE INFESTATION
     Route: 061

REACTIONS (1)
  - CHEMICAL BURN OF SKIN [None]
